FAERS Safety Report 15746367 (Version 2)
Quarter: 2019Q2

REPORT INFORMATION
  Report Type: Spontaneous
  Country: US (occurrence: US)
  Receive Date: 20181220
  Receipt Date: 20190509
  Transmission Date: 20190711
  Serious: Yes (Other)
  Sender: FDA-Public Use
  Company Number: US-SA-2018SA342683

PATIENT
  Sex: Female
  Weight: 66 kg

DRUGS (10)
  1. CLONAZEPAM. [Concomitant]
     Active Substance: CLONAZEPAM
     Dosage: UNK UNK, UNK
     Route: 065
  2. ELLENCE [Concomitant]
     Active Substance: EPIRUBICIN HYDROCHLORIDE
     Dosage: UNK UNK, UNK
     Route: 065
  3. LEXAPRO [Concomitant]
     Active Substance: ESCITALOPRAM OXALATE
     Dosage: UNK UNK, UNK
     Route: 065
  4. EFUDEX [Concomitant]
     Active Substance: FLUOROURACIL
     Dosage: UNK UNK, UNK
     Route: 065
  5. PLATINOL [Concomitant]
     Active Substance: CISPLATIN
     Dosage: UNK UNK, UNK
     Route: 065
  6. ADRIAMYCIN [Concomitant]
     Active Substance: DOXORUBICIN HYDROCHLORIDE
     Dosage: UNK UNK, UNK
     Route: 065
  7. TAXOL [Concomitant]
     Active Substance: PACLITAXEL
     Dosage: UNK UNK, UNK
     Route: 065
  8. VINBLASTINE [Concomitant]
     Active Substance: VINBLASTINE
     Dosage: UNK UNK, UNK
     Route: 065
  9. TAXOTERE [Suspect]
     Active Substance: DOCETAXEL
     Indication: BREAST CANCER FEMALE
     Dosage: UNK UNK, UNK
     Route: 042
     Dates: start: 20090501, end: 20090501
  10. TAXOTERE [Suspect]
     Active Substance: DOCETAXEL
     Dosage: UNK UNK, UNK
     Route: 042
     Dates: start: 20091031, end: 20091031

REACTIONS (3)
  - Emotional distress [Unknown]
  - Psychological trauma [Unknown]
  - Alopecia [Not Recovered/Not Resolved]

NARRATIVE: CASE EVENT DATE: 2010
